FAERS Safety Report 11456743 (Version 2)
Quarter: 2015Q3

REPORT INFORMATION
  Report Type: Spontaneous
  Country: JO (occurrence: JO)
  Receive Date: 20150903
  Receipt Date: 20150911
  Transmission Date: 20151125
  Serious: Yes (Hospitalization, Disabling)
  Sender: FDA-Public Use
  Company Number: JO-INCYTE CORPORATION-2015IN004364

PATIENT
  Age: 71 Year
  Sex: Male
  Weight: 85 kg

DRUGS (11)
  1. ARBITAN [Concomitant]
     Indication: BLOOD PRESSURE INCREASED
     Dosage: 16012.5 MG, QD
     Route: 048
  2. GLIMERYL [Concomitant]
     Dosage: 2 MG, QD
  3. NEUROVITAN [Concomitant]
     Active Substance: VITAMINS
     Indication: PRODUCT USED FOR UNKNOWN INDICATION
     Dosage: UNK UNK, QD
     Route: 048
  4. GLIMERYL [Concomitant]
     Indication: BLOOD GLUCOSE INCREASED
     Dosage: 2 MG, QD
     Route: 065
     Dates: start: 20150401
  5. HYDRINE//HYDROXYCARBAMIDE [Concomitant]
     Indication: MYELOFIBROSIS
     Dosage: 500 MG, BID
     Route: 048
     Dates: start: 20030301
  6. OSPEN [Concomitant]
     Active Substance: PENICILLIN V
     Indication: ANTIBIOTIC PROPHYLAXIS
     Dosage: 1000 MG, BID
     Route: 048
     Dates: start: 20070720, end: 20150817
  7. KOMBOGLYZE [Concomitant]
     Active Substance: METFORMIN HYDROCHLORIDE\SAXAGLIPTIN
     Indication: TYPE 2 DIABETES MELLITUS
     Dosage: 5 MG, QD
     Route: 048
     Dates: start: 20150101, end: 20150302
  8. BABY ASPIRIN [Concomitant]
     Active Substance: ASPIRIN
     Indication: PRODUCT USED FOR UNKNOWN INDICATION
     Dosage: UNK UNK, QD (DOCTORS ORDERS)
     Route: 065
     Dates: start: 2009
  9. JAKAFI [Suspect]
     Active Substance: RUXOLITINIB
     Indication: MYELOFIBROSIS
     Dosage: 20 MG, BID
     Route: 048
     Dates: start: 20130815, end: 20150824
  10. ACETAMINOPHEN. [Concomitant]
     Active Substance: ACETAMINOPHEN
     Indication: PRODUCT USED FOR UNKNOWN INDICATION
     Route: 065
  11. ZYLORIC [Concomitant]
     Active Substance: ALLOPURINOL
     Indication: PRODUCT USED FOR UNKNOWN INDICATION
     Dosage: UNK UNK, QD
     Route: 048

REACTIONS (2)
  - Haemorrhage [Recovered/Resolved]
  - Localised infection [Recovered/Resolved]

NARRATIVE: CASE EVENT DATE: 20150228
